FAERS Safety Report 7773882-3 (Version None)
Quarter: 2011Q3

REPORT INFORMATION
  Report Type: 
  Country: None (occurrence: None)
  Receive Date: 20110923
  Receipt Date: 20110915
  Transmission Date: 20111222
  Serious: Yes (Hospitalization)
  Sender: FDA-Public Use
  Company Number: US-GENZYME-CAMP-1001741

PATIENT
  Sex: Female
  Weight: 66.213 kg

DRUGS (10)
  1. ALEMTUZUMAB [Suspect]
     Dosage: 12 MG, QDX3
     Route: 042
     Dates: start: 20110620, end: 20110622
  2. CYMBALTA [Concomitant]
     Indication: PAIN
     Dosage: 60 MG, QD
     Route: 048
     Dates: start: 20100727
  3. DOXAZOSIN MESYLATE [Concomitant]
     Indication: NEUROGENIC BLADDER
     Dosage: 2.0 MG, BID
     Route: 048
     Dates: start: 20080101
  4. ALEMTUZUMAB [Suspect]
     Dosage: DOSE BLINDED
     Dates: start: 20090105, end: 20090109
  5. FLOMAX [Concomitant]
     Indication: NEUROGENIC BLADDER
     Dosage: 0.4 MG, QD
     Route: 048
     Dates: start: 20080401
  6. BENADRYL [Concomitant]
     Indication: INFUSION RELATED REACTION
     Dosage: 50 MG, PRN
     Route: 048
     Dates: start: 20100104
  7. ALEMTUZUMAB [Suspect]
     Indication: MULTIPLE SCLEROSIS
     Dosage: 12 MG, QDX3
     Route: 042
     Dates: start: 20100104, end: 20100106
  8. DICYCLOMINE [Concomitant]
     Indication: IRRITABLE BOWEL SYNDROME
     Dosage: 10 MG, PRN
     Route: 048
     Dates: start: 20060101
  9. AMRIX [Concomitant]
     Indication: MUSCLE SPASMS
     Dosage: 15 MG, QD
     Route: 048
     Dates: start: 20090501
  10. PROVIGIL [Concomitant]
     Indication: FATIGUE
     Dosage: 200 MG, QD
     Route: 048
     Dates: start: 20090205

REACTIONS (1)
  - SYNCOPE [None]
